FAERS Safety Report 7153482-9 (Version None)
Quarter: 2010Q4

REPORT INFORMATION
  Report Type: 
  Country: None (occurrence: None)
  Receive Date: 20101213
  Receipt Date: 20101210
  Transmission Date: 20110411
  Serious: Yes (Life-Threatening, Hospitalization)
  Sender: FDA-Public Use
  Company Number: A0899347A

PATIENT
  Sex: Female
  Weight: 36 kg

DRUGS (5)
  1. LAPATINIB [Suspect]
     Dosage: 1250MG PER DAY
     Route: 048
     Dates: start: 20100413
  2. PACLITAXEL [Suspect]
     Dosage: 90MGM2 WEEKLY
     Route: 042
     Dates: start: 20100413, end: 20100929
  3. GAVISCON [Concomitant]
     Dates: start: 20100618
  4. GRAVOL TAB [Concomitant]
     Indication: NAUSEA
     Dates: start: 20100721
  5. RABEPRAZOLE SODIUM [Concomitant]
     Dates: start: 20100909

REACTIONS (1)
  - FAILURE TO THRIVE [None]
